FAERS Safety Report 9737416 (Version 1)
Quarter: 2013Q4

REPORT INFORMATION
  Report Type: Spontaneous
  Country: GB (occurrence: GB)
  Receive Date: 20131206
  Receipt Date: 20131206
  Transmission Date: 20140711
  Serious: Yes (Other)
  Sender: FDA-Public Use
  Company Number: GB-ASTRAZENECA-2013SE88377

PATIENT
  Sex: 0

DRUGS (2)
  1. BRILIQUE [Suspect]
     Route: 048
  2. BIVALIRUDIN [Concomitant]

REACTIONS (1)
  - Thrombosis in device [Unknown]
